FAERS Safety Report 4311116-2 (Version None)
Quarter: 2004Q1

REPORT INFORMATION
  Report Type: 
  Country: None (occurrence: None)
  Receive Date: 20040302
  Receipt Date: 20040211
  Transmission Date: 20041129
  Serious: Yes (Other)
  Sender: FDA-Public Use
  Company Number: CIP040000255

PATIENT
  Age: 58 Year
  Sex: Female

DRUGS (4)
  1. ACTONEL [Suspect]
     Indication: OSTEOPOROSIS
     Dosage: 30 MG ONCE DAILY, ORAL
     Route: 048
     Dates: start: 20031121, end: 20031126
  2. ACTONEL [Suspect]
     Indication: OSTEOPOROSIS
     Dosage: 35 MG ONCE WEEKLY, ORAL
     Route: 048
     Dates: start: 20031201, end: 20040101
  3. THYROID TAB [Concomitant]
  4. ALTACE [Concomitant]

REACTIONS (3)
  - MEDICATION ERROR [None]
  - PHOTOPSIA [None]
  - VITREOUS DETACHMENT [None]
